FAERS Safety Report 12643457 (Version 1)
Quarter: 2016Q3

REPORT INFORMATION
  Report Type: Spontaneous
  Country: US (occurrence: US)
  Receive Date: 20160811
  Receipt Date: 20160811
  Transmission Date: 20161109
  Serious: No
  Sender: FDA-Public Use
  Company Number: US-BEH-2016072116

PATIENT
  Sex: Female
  Weight: 56.69 kg

DRUGS (24)
  1. ACETAMINOPHEN. [Concomitant]
     Active Substance: ACETAMINOPHEN
  2. ZYRTEC [Concomitant]
     Active Substance: CETIRIZINE HYDROCHLORIDE
  3. GUAIFENESIN AND CODEINE PHOSPHATE [Concomitant]
     Active Substance: CODEINE PHOSPHATE\GUAIFENESIN
  4. PULMICORT TURBUHALER [Concomitant]
     Active Substance: BUDESONIDE
  5. EPIPEN [Concomitant]
     Active Substance: EPINEPHRINE
  6. PROAIR HFA [Concomitant]
     Active Substance: ALBUTEROL SULFATE
  7. AMBIEN [Concomitant]
     Active Substance: ZOLPIDEM TARTRATE
  8. SYNTHROID [Concomitant]
     Active Substance: LEVOTHYROXINE SODIUM
  9. TOPAMAX [Concomitant]
     Active Substance: TOPIRAMATE
  10. SINGULAIR [Concomitant]
     Active Substance: MONTELUKAST SODIUM
  11. XANAX [Concomitant]
     Active Substance: ALPRAZOLAM
  12. IMDUR [Concomitant]
     Active Substance: ISOSORBIDE MONONITRATE
  13. ALBUTEROL                          /00139501/ [Concomitant]
     Active Substance: ALBUTEROL
  14. ADVENT                             /00756801/ [Concomitant]
  15. LAMICTAL [Concomitant]
     Active Substance: LAMOTRIGINE
  16. CELEXA [Concomitant]
     Active Substance: CITALOPRAM HYDROBROMIDE
  17. MIRALAX [Concomitant]
     Active Substance: POLYETHYLENE GLYCOL 3350
  18. DIPHENHYDRAMINE. [Concomitant]
     Active Substance: DIPHENHYDRAMINE
  19. PREMARIN [Concomitant]
     Active Substance: ESTROGENS, CONJUGATED
  20. NITROGLYCERIN. [Concomitant]
     Active Substance: NITROGLYCERIN
  21. HIZENTRA [Suspect]
     Active Substance: HUMAN IMMUNOGLOBULIN G
     Indication: IMMUNODEFICIENCY COMMON VARIABLE
     Dosage: 8 G, QW
     Route: 058
     Dates: start: 20141006
  22. LIDOCAINE. [Concomitant]
     Active Substance: LIDOCAINE
  23. CRESTOR [Concomitant]
     Active Substance: ROSUVASTATIN CALCIUM
  24. ASPIRIN. [Concomitant]
     Active Substance: ASPIRIN

REACTIONS (1)
  - Cystitis [Recovered/Resolved]
